FAERS Safety Report 4637718-1 (Version None)
Quarter: 2005Q2

REPORT INFORMATION
  Report Type: 
  Country: None (occurrence: None)
  Receive Date: 20050328
  Receipt Date: 20041215
  Transmission Date: 20051028
  Serious: No
  Sender: FDA-Public Use
  Company Number: USA041286242

PATIENT
  Age: 9 Year
  Sex: Male

DRUGS (1)
  1. STRATTERA [Suspect]
     Indication: ATTENTION DEFICIT/HYPERACTIVITY DISORDER
     Dosage: 40 MG AT BEDTIME
     Dates: start: 20030101

REACTIONS (7)
  - AGITATION [None]
  - ANGER [None]
  - DECREASED APPETITE [None]
  - DEPRESSION [None]
  - DRUG EFFECT DECREASED [None]
  - MOOD SWINGS [None]
  - SOMNOLENCE [None]
